FAERS Safety Report 7562017-8 (Version None)
Quarter: 2011Q2

REPORT INFORMATION
  Report Type: 
  Country: None (occurrence: None)
  Receive Date: 20110622
  Receipt Date: 20110614
  Transmission Date: 20111010
  Serious: Yes (Hospitalization, Disabling, Other)
  Sender: FDA-Public Use
  Company Number: NL-AMGEN-NLDSP2011028605

PATIENT
  Age: 39 Year
  Sex: Female

DRUGS (5)
  1. SULFASALAZINE [Concomitant]
     Dosage: 2 TABLETS OF 500 MG TWICE DAILY
  2. FOLIC ACID [Concomitant]
     Dosage: 10 UNK, UNK
  3. ENBREL [Suspect]
     Indication: RHEUMATOID ARTHRITIS
     Dosage: 50 MG, WEEKLY
     Dates: start: 20101201, end: 20110516
  4. METHOTREXATE SODIUM [Concomitant]
     Dosage: 10X 2.5 MG, WEEKLY
  5. ERYTHROMYCIN [Concomitant]
     Dosage: 20 MG/G

REACTIONS (1)
  - PSYCHOTIC DISORDER [None]
